FAERS Safety Report 16047885 (Version 2)
Quarter: 2019Q1

REPORT INFORMATION
  Report Type: Report from Study
  Country: DE (occurrence: DE)
  Receive Date: 20190307
  Receipt Date: 20190321
  Transmission Date: 20190418
  Serious: Yes (Other)
  Sender: FDA-Public Use
  Company Number: DE-MYLANLABS-2019M1020424

PATIENT
  Age: 72 Year
  Sex: Male
  Weight: 81.8 kg

DRUGS (24)
  1. TAMSULOSIN 1A PHARMA [Concomitant]
     Indication: PROSTATOMEGALY
     Dosage: 0.4 MG, QD
     Route: 048
  2. SITAGLIPTIN [Concomitant]
     Active Substance: SITAGLIPTIN
     Indication: BLOOD GLUCOSE
     Dosage: 25 MG, QD
     Route: 048
  3. CORTISONE [Concomitant]
     Active Substance: CORTISONE\HYDROCORTISONE
     Indication: GOUT
     Route: 065
  4. TORASEMIDE [Suspect]
     Active Substance: TORSEMIDE
     Indication: WEIGHT ABNORMAL
     Dosage: UNK,40 MG IN THE EARLY, 20 OR 40 MG AT NOON, SOMETIMES FURTHER INTAKES IN THE EVENING
     Route: 065
  5. AMLODIPINE [Suspect]
     Active Substance: AMLODIPINE BESYLATE
     Indication: PRODUCT USED FOR UNKNOWN INDICATION
     Dosage: UNK
     Route: 065
  6. TORASEMID-1A PHARMA [Suspect]
     Active Substance: TORSEMIDE
     Dosage: 60 MILLIGRAM, QD, (20 MG, TID)
     Route: 048
     Dates: start: 20180226
  7. PANTOPRAZOLE [Concomitant]
     Active Substance: PANTOPRAZOLE
     Indication: DYSPEPSIA
     Dosage: 40 MG, QD
     Route: 048
  8. TORASEMID-1A PHARMA [Suspect]
     Active Substance: TORSEMIDE
     Indication: CARDIAC FAILURE CHRONIC
     Dosage: 90 MG, QD (20 MGX2-20MGX2-20MGX1)
     Route: 048
     Dates: start: 20180320, end: 20180323
  9. TORASEMID-1A PHARMA [Suspect]
     Active Substance: TORSEMIDE
     Dosage: 40 MILLIGRAM, QD
     Route: 048
     Dates: start: 20180129, end: 20180225
  10. AMIODARON HEUMANN [Concomitant]
     Indication: ARRHYTHMIA
     Dosage: 200 MG, QD
     Route: 048
     Dates: start: 20180218
  11. TORASEMID-1A PHARMA [Suspect]
     Active Substance: TORSEMIDE
     Dosage: 20 MILLIGRAM, PRN
     Route: 048
  12. VALSARTAN. [Concomitant]
     Active Substance: VALSARTAN
     Indication: BLOOD PRESSURE INCREASED
     Dosage: 320 MG, QD
     Route: 048
  13. NOVAMINSULFON [Concomitant]
     Active Substance: METAMIZOLE
     Indication: PAIN
     Dosage: UNK
     Route: 065
  14. TILIDIN [Concomitant]
     Active Substance: NALOXONE HYDROCHLORIDE\TILIDINE HYDROCHLORIDE
     Indication: GOUT
     Dosage: 50 MG, QD
     Route: 048
     Dates: start: 20180423
  15. ATOZET [Concomitant]
     Active Substance: ATORVASTATIN CALCIUM\EZETIMIBE
     Indication: BLOOD CHOLESTEROL
     Dosage: 1 MG, QD
     Route: 048
  16. MINOXIDIL. [Concomitant]
     Active Substance: MINOXIDIL
     Indication: BLOOD PRESSURE INCREASED
     Dosage: 5 MG, QD
     Route: 048
  17. APIXABAN [Concomitant]
     Active Substance: APIXABAN
     Indication: PRODUCT USED FOR UNKNOWN INDICATION
     Dosage: 10 MG, QD
     Route: 048
  18. MOXONIDIN 1 A PHARM [Concomitant]
     Indication: BLOOD PRESSURE INCREASED
     Dosage: 0.6 MG, QD
     Route: 048
  19. METOPROLOL - 1 A PHARMA [Concomitant]
     Indication: HEART RATE IRREGULAR
     Dosage: 47.5 MG, QD
     Route: 048
  20. FINASTERID [Concomitant]
     Active Substance: FINASTERIDE
     Indication: ANDROGENETIC ALOPECIA
     Dosage: 5 MG, QD
     Route: 048
  21. TORASEMID-1A PHARMA [Suspect]
     Active Substance: TORSEMIDE
     Dosage: 70 MILLIGRAM, QD,  (20MG-30MG-20MG)
     Route: 048
  22. EBRANTIL                           /00631801/ [Concomitant]
     Active Substance: URAPIDIL
     Indication: BLOOD PRESSURE INCREASED
     Dosage: 90 MG, QD
     Route: 048
  23. PREDNISOLON                        /00016201/ [Suspect]
     Active Substance: PREDNISOLONE
     Indication: GOUT
     Dosage: 20 MG, QD SLIGHTLY TAPERED
     Route: 048
     Dates: end: 20180323
  24. TORASEMID-1A PHARMA [Suspect]
     Active Substance: TORSEMIDE
     Dosage: 40 MILLIGRAM, QD, (20 MG, BID)
     Route: 048
     Dates: start: 20180418

REACTIONS (20)
  - Gout [Not Recovered/Not Resolved]
  - Oedema [Unknown]
  - Tooth loss [Not Recovered/Not Resolved]
  - Oedema peripheral [Recovered/Resolved]
  - Blood pressure fluctuation [Not Recovered/Not Resolved]
  - Inappropriate schedule of product administration [Not Recovered/Not Resolved]
  - Heart rate increased [Not Recovered/Not Resolved]
  - Wound [Not Recovered/Not Resolved]
  - Renal failure [Not Recovered/Not Resolved]
  - Weight decreased [Unknown]
  - Iron deficiency [Not Recovered/Not Resolved]
  - Skin ulcer [Not Recovered/Not Resolved]
  - Cardiac failure [Unknown]
  - Weight increased [Recovering/Resolving]
  - Arthralgia [Not Recovered/Not Resolved]
  - Fatigue [Not Recovered/Not Resolved]
  - Pain [Not Recovered/Not Resolved]
  - Nocturia [Not Recovered/Not Resolved]
  - Blood uric acid increased [Not Recovered/Not Resolved]
  - Wound secretion [Not Recovered/Not Resolved]

NARRATIVE: CASE EVENT DATE: 2018
